APPROVED DRUG PRODUCT: DEXTROAMP SACCHARATE, AMP ASPARTATE, DEXTROAMP SULFATE AND AMP SULFATE
Active Ingredient: AMPHETAMINE ASPARTATE; AMPHETAMINE SULFATE; DEXTROAMPHETAMINE SACCHARATE; DEXTROAMPHETAMINE SULFATE
Strength: 5MG;5MG;5MG;5MG
Dosage Form/Route: TABLET;ORAL
Application: A040472 | Product #003
Applicant: TEVA PHARMACEUTICALS USA
Approved: Sep 30, 2003 | RLD: No | RS: No | Type: DISCN